FAERS Safety Report 9250159 (Version 1)
Quarter: 2013Q2

REPORT INFORMATION
  Report Type: Spontaneous
  Country: NL (occurrence: NL)
  Receive Date: 20130424
  Receipt Date: 20130424
  Transmission Date: 20140414
  Serious: Yes (Death)
  Sender: FDA-Public Use
  Company Number: NL-AMGEN-NLDSP2013027834

PATIENT
  Sex: Male

DRUGS (2)
  1. ARANESP [Suspect]
     Indication: ANAEMIA
     Dosage: 500
     Route: 058
     Dates: start: 20130227
  2. ARANESP [Suspect]
     Indication: NEOPLASM MALIGNANT

REACTIONS (1)
  - Death [Fatal]
